FAERS Safety Report 14994455 (Version 1)
Quarter: 2018Q2

REPORT INFORMATION
  Report Type: Spontaneous
  Country: DE (occurrence: DE)
  Receive Date: 20180611
  Receipt Date: 20180611
  Transmission Date: 20180711
  Serious: Yes (Other)
  Sender: FDA-Public Use
  Company Number: DE-HETERO CORPORATE-HET2018DE00511

PATIENT
  Sex: Male

DRUGS (2)
  1. LEVETIRACETAM. [Suspect]
     Active Substance: LEVETIRACETAM
     Indication: SEIZURE
     Dosage: 1000 MG, 3X/DAY (TID)
     Route: 065
     Dates: start: 201409, end: 201612
  2. LAMOTRIGINE. [Concomitant]
     Active Substance: LAMOTRIGINE
     Indication: SEIZURE
     Dosage: 50 MG, QD
     Route: 065

REACTIONS (4)
  - Off label use [Unknown]
  - Restlessness [Unknown]
  - Seizure [Unknown]
  - Aggression [Unknown]

NARRATIVE: CASE EVENT DATE: 201409
